FAERS Safety Report 10543393 (Version 3)
Quarter: 2015Q2

REPORT INFORMATION
  Report Type: Report from Study
  Country: US (occurrence: US)
  Receive Date: 20141027
  Receipt Date: 20150423
  Transmission Date: 20150821
  Serious: Yes (Hospitalization)
  Sender: FDA-Public Use
  Company Number: US-CELGENE-USA-2014103194

PATIENT
  Age: 62 Year
  Sex: Male
  Weight: 88.53 kg

DRUGS (32)
  1. ZOCOR [Concomitant]
     Active Substance: SIMVASTATIN
     Indication: HYPERLIPIDAEMIA
     Dosage: 1000 MILLIGRAM
     Route: 048
     Dates: start: 20050912
  2. TOPROL XL [Concomitant]
     Active Substance: METOPROLOL SUCCINATE
     Indication: CHRONIC OBSTRUCTIVE PULMONARY DISEASE
     Route: 055
     Dates: start: 20080423
  3. MAGNESIUM OXIDE. [Concomitant]
     Active Substance: MAGNESIUM OXIDE
     Route: 041
     Dates: start: 20140916, end: 20140916
  4. MAGNESIUM SULFATE. [Concomitant]
     Active Substance: MAGNESIUM SULFATE
     Indication: BLOOD MAGNESIUM DECREASED
     Route: 041
     Dates: start: 20140902, end: 20140902
  5. FOSAPREPITANT [Concomitant]
     Active Substance: FOSAPREPITANT
     Indication: PROPHYLAXIS OF NAUSEA AND VOMITING
     Route: 041
     Dates: start: 20140916, end: 20140916
  6. DECADRON [Concomitant]
     Active Substance: DEXAMETHASONE
     Indication: NAUSEA
     Route: 041
     Dates: start: 20140715, end: 20140715
  7. CARBOPLATIN. [Suspect]
     Active Substance: CARBOPLATIN
     Indication: NON-SMALL CELL LUNG CANCER
     Dosage: AUC 6 MG/ML/DAY
     Route: 041
     Dates: start: 20140715
  8. CARBOPLATIN. [Suspect]
     Active Substance: CARBOPLATIN
     Dosage: AUC 4.5 MG/ML
     Route: 041
     Dates: start: 20141007
  9. DECADRON [Concomitant]
     Active Substance: DEXAMETHASONE
     Route: 048
     Dates: start: 20140716, end: 20140717
  10. TAZOBACTAM SODIUM + PIPERACILLIN SODIUM [Concomitant]
     Indication: CHRONIC OBSTRUCTIVE PULMONARY DISEASE
     Dosage: .5/4G
     Route: 041
     Dates: start: 20140803, end: 20140808
  11. LEVOFLOXACIN. [Concomitant]
     Active Substance: LEVOFLOXACIN
     Indication: CHRONIC OBSTRUCTIVE PULMONARY DISEASE
     Dosage: 25MG/ML
     Route: 041
     Dates: start: 20140803, end: 20140808
  12. METFORMIN [Concomitant]
     Active Substance: METFORMIN HYDROCHLORIDE
     Indication: DIABETES MELLITUS
     Dosage: 25 MILLIGRAM
     Route: 048
     Dates: start: 20051118
  13. LOPERAMIDE [Concomitant]
     Active Substance: LOPERAMIDE
     Indication: DIARRHOEA
     Route: 048
     Dates: start: 20140728, end: 20140801
  14. ASPIRIN. [Concomitant]
     Active Substance: ASPIRIN
     Indication: CARDIOVASCULAR EVENT PROPHYLAXIS
     Dosage: 81 MILLIGRAM
     Route: 048
     Dates: start: 20100125
  15. COMPAZINE [Concomitant]
     Active Substance: PROCHLORPERAZINE MALEATE
     Indication: NAUSEA
     Route: 048
     Dates: start: 20140715, end: 20141007
  16. MAGNESIUM OXIDE. [Concomitant]
     Active Substance: MAGNESIUM OXIDE
     Indication: BLOOD MAGNESIUM DECREASED
     Route: 041
     Dates: start: 20140826, end: 20140826
  17. DECADRON [Concomitant]
     Active Substance: DEXAMETHASONE
     Route: 041
     Dates: start: 20141007, end: 20141007
  18. ABRAXANE [Suspect]
     Active Substance: PACLITAXEL
     Indication: NON-SMALL CELL LUNG CANCER
     Route: 041
     Dates: start: 20140715
  19. FOSAPREPITANT [Concomitant]
     Active Substance: FOSAPREPITANT
     Route: 041
     Dates: start: 20141007, end: 20141007
  20. DECADRON [Concomitant]
     Active Substance: DEXAMETHASONE
     Route: 041
     Dates: start: 20140916, end: 20140916
  21. KYTRIL [Concomitant]
     Active Substance: GRANISETRON HYDROCHLORIDE
     Indication: NAUSEA
     Route: 048
     Dates: start: 20140722, end: 20141007
  22. DECADRON [Concomitant]
     Active Substance: DEXAMETHASONE
     Route: 041
     Dates: start: 20140930, end: 20140930
  23. ZESTRIL [Concomitant]
     Active Substance: LISINOPRIL
     Indication: HYPERTENSION
     Dosage: 40 MILLIGRAM
     Route: 048
     Dates: start: 20050904, end: 20140818
  24. TEMAZEPAM. [Concomitant]
     Active Substance: TEMAZEPAM
     Indication: ANXIETY
     Dosage: 30 MILLIGRAM
     Route: 048
     Dates: start: 20140626
  25. VANCOMYCIN [Concomitant]
     Active Substance: VANCOMYCIN
     Indication: CHRONIC OBSTRUCTIVE PULMONARY DISEASE
     Route: 041
     Dates: start: 20140803, end: 20140808
  26. VANCOMYCIN [Concomitant]
     Active Substance: VANCOMYCIN
     Route: 041
     Dates: start: 20140803, end: 20140808
  27. LEVOFLOXACIN. [Concomitant]
     Active Substance: LEVOFLOXACIN
     Route: 041
     Dates: start: 20140803, end: 20140808
  28. ABRAXANE [Suspect]
     Active Substance: PACLITAXEL
     Route: 041
     Dates: start: 20141007
  29. TRAMADOL [Concomitant]
     Active Substance: TRAMADOL
     Indication: MYALGIA
     Route: 048
     Dates: start: 20140625
  30. MAGNESIUM OXIDE. [Concomitant]
     Active Substance: MAGNESIUM OXIDE
     Route: 048
     Dates: start: 20140826
  31. ALOXI [Concomitant]
     Active Substance: PALONOSETRON HYDROCHLORIDE
     Indication: NAUSEA
     Route: 041
     Dates: start: 20140916, end: 20140916
  32. ALOXI [Concomitant]
     Active Substance: PALONOSETRON HYDROCHLORIDE
     Route: 041
     Dates: start: 20141007, end: 20141007

REACTIONS (1)
  - Syncope [Recovered/Resolved]

NARRATIVE: CASE EVENT DATE: 20141012
